FAERS Safety Report 11553022 (Version 1)
Quarter: 2015Q3

REPORT INFORMATION
  Report Type: Spontaneous
  Country: US (occurrence: None)
  Receive Date: 20150924
  Receipt Date: 20150924
  Transmission Date: 20151125
  Serious: Yes (Other)
  Sender: FDA-Public Use
  Company Number: None

PATIENT
  Age: 46 Year
  Sex: Female
  Weight: 66.8 kg

DRUGS (2)
  1. BUPRENORPHINE NALOXONE [Suspect]
     Active Substance: BUPRENORPHINE\NALOXONE
     Indication: INVESTIGATION
     Dosage: 2X8MG/2MG ONCE ORAL
     Route: 048
     Dates: start: 20150712
  2. NALTREXONE [Suspect]
     Active Substance: NALTREXONE
     Indication: INVESTIGATION
     Dosage: 50 MG -12,0,+12 ORAL
     Route: 048
     Dates: start: 20150711, end: 20150712

REACTIONS (3)
  - Maternal exposure before pregnancy [None]
  - Abortion spontaneous [None]
  - Pregnancy [None]

NARRATIVE: CASE EVENT DATE: 20150714
